FAERS Safety Report 8883720 (Version 1)
Quarter: 2012Q4

REPORT INFORMATION
  Report Type: 
  Country: US (occurrence: US)
  Receive Date: 20121102
  Receipt Date: 20121102
  Transmission Date: 20130627
  Serious: No
  Sender: FDA-Public Use
  Company Number: US-GLAXOSMITHKLINE-A0995629A

PATIENT
  Age: 62 Year
  Sex: Female

DRUGS (5)
  1. HORIZANT [Suspect]
     Indication: RESTLESS LEGS SYNDROME
     Dosage: 600MG Per day
     Route: 048
     Dates: start: 20120913
  2. ATENOLOL [Concomitant]
  3. BACLOFEN [Concomitant]
  4. VICODIN [Concomitant]
  5. KLONOPIN [Concomitant]

REACTIONS (5)
  - Insomnia [Not Recovered/Not Resolved]
  - Tearfulness [Not Recovered/Not Resolved]
  - Stomatitis [Recovered/Resolved]
  - Headache [Not Recovered/Not Resolved]
  - Therapeutic response unexpected [Unknown]
